FAERS Safety Report 9660999 (Version 2)
Quarter: 2014Q1

REPORT INFORMATION
  Report Type: Spontaneous
  Country: IT (occurrence: IT)
  Receive Date: 20131031
  Receipt Date: 20140321
  Transmission Date: 20141002
  Serious: Yes (Hospitalization)
  Sender: FDA-Public Use
  Company Number: IT-WATSON-2013-19553

PATIENT
  Age: 61 Year
  Sex: Female

DRUGS (3)
  1. SERTRALINE HYDROCHLORIDE (UNKNOWN) [Suspect]
     Indication: DEPRESSION
     Dosage: 100 MG, DAILY
     Route: 048
     Dates: start: 20120101, end: 20131003
  2. TAVOR /00273201/ [Suspect]
     Indication: DEPRESSION
     Dosage: 2.5 MG, DAILY
     Route: 048
     Dates: start: 20120101, end: 20131003
  3. TALOFEN [Suspect]
     Indication: DEPRESSION
     Dosage: 50 DROPS, DAILY
     Route: 048
     Dates: start: 20120101, end: 20131003

REACTIONS (3)
  - Hypochloraemia [Recovering/Resolving]
  - Hyponatraemia [Recovering/Resolving]
  - Conduct disorder [Recovering/Resolving]
